FAERS Safety Report 6832787-2 (Version None)
Quarter: 2010Q3

REPORT INFORMATION
  Report Type: 
  Country: None (occurrence: None)
  Receive Date: 20100712
  Receipt Date: 20070319
  Transmission Date: 20110219
  Serious: No
  Sender: FDA-Public Use
  Company Number: US-PFIZER INC-2007023939

PATIENT
  Sex: Female
  Weight: 115 kg

DRUGS (8)
  1. CHANTIX [Suspect]
     Dates: start: 20070101
  2. LOVASTATIN [Concomitant]
     Indication: BLOOD CHOLESTEROL INCREASED
  3. PANTOPRAZOLE [Concomitant]
     Indication: GASTRIC DISORDER
  4. ACETYLSALICYLIC ACID [Concomitant]
  5. PENTOXIFYLLINE [Concomitant]
  6. HYDROCHLOROTHIAZIDE [Concomitant]
     Indication: HYPERTENSION
  7. BUPROPION [Concomitant]
  8. ANTICOAGULANTS [Concomitant]

REACTIONS (1)
  - NAUSEA [None]
